FAERS Safety Report 4535153-8 (Version None)
Quarter: 2004Q4

REPORT INFORMATION
  Report Type: 
  Country: None (occurrence: None)
  Receive Date: 20041214
  Receipt Date: 20041001
  Transmission Date: 20050328
  Serious: No
  Sender: FDA-Public Use
  Company Number: 2004238404US

PATIENT
  Age: 73 Year
  Sex: Female
  Weight: 74.8 kg

DRUGS (7)
  1. BEXTRA [Suspect]
     Indication: ARTHRITIS
     Dosage: 10 MG, QD
     Dates: start: 20040928
  2. LEVAQUIN [Suspect]
     Indication: CHRONIC OBSTRUCTIVE AIRWAYS DISEASE
     Dates: start: 20040928, end: 20040101
  3. SYNTHROID [Concomitant]
  4. INHALER, UNSPECIFIED [Concomitant]
  5. DETROL LA [Concomitant]
  6. DITROPAN [Concomitant]
  7. ACETAMINOPHEN [Concomitant]

REACTIONS (2)
  - EYELID OEDEMA [None]
  - RASH [None]
